FAERS Safety Report 7858176-X (Version None)
Quarter: 2011Q4

REPORT INFORMATION
  Report Type: 
  Country: None (occurrence: None)
  Receive Date: 20111027
  Receipt Date: 20111012
  Transmission Date: 20120403
  Serious: Yes (Hospitalization, Other)
  Sender: FDA-Public Use
  Company Number: US-BAYER-2011-044354

PATIENT
  Age: 45 Year
  Sex: Female
  Weight: 65.306 kg

DRUGS (10)
  1. IBUPROFEN (ADVIL) [Concomitant]
  2. VALTREX [Concomitant]
     Dosage: 500 MG, UNK
  3. YAZ [Suspect]
     Indication: ORAL CONTRACEPTION
     Dosage: UNK
     Dates: start: 20080205, end: 20090720
  4. ACETAMINOPHEN [Concomitant]
     Dosage: 300MG-30MG
  5. ADVAIR DISKUS 100/50 [Concomitant]
     Dosage: UNK
     Dates: start: 20090101
  6. DETROL LA [Concomitant]
     Dosage: 4 MG, UNK
  7. OXYBUTYNIN CHLORIDE [Concomitant]
     Dosage: 10 MG, UNK
  8. NEXIUM [Concomitant]
     Dosage: 40 MG, UNK
  9. YASMIN [Suspect]
     Indication: ORAL CONTRACEPTION
     Dosage: UNK
     Dates: start: 20060701, end: 20080201
  10. FLUTICASONE PROPIONATE [Concomitant]
     Dosage: 50 MCG/24HR, UNK
     Route: 045

REACTIONS (9)
  - EMOTIONAL DISTRESS [None]
  - CHOLECYSTITIS CHRONIC [None]
  - GALLBLADDER DISORDER [None]
  - MENTAL DISORDER [None]
  - ABDOMINAL PAIN [None]
  - FEAR [None]
  - INJURY [None]
  - ANXIETY [None]
  - PAIN [None]
